FAERS Safety Report 10017779 (Version 1)
Quarter: 2014Q1

REPORT INFORMATION
  Report Type: Spontaneous
  Country: US (occurrence: US)
  Receive Date: 20140318
  Receipt Date: 20140318
  Transmission Date: 20141002
  Serious: No
  Sender: FDA-Public Use
  Company Number: US-BRISTOL-MYERS SQUIBB COMPANY-18845180

PATIENT
  Age: 53 Year
  Sex: Female
  Weight: 79.36 kg

DRUGS (6)
  1. ERBITUX [Suspect]
     Indication: COLON CANCER
     Dates: start: 201301
  2. CRESTOR [Concomitant]
  3. MAGNESIUM [Concomitant]
     Dosage: TAB
  4. BAYER ASPIRIN [Concomitant]
  5. COLACE [Concomitant]
  6. ALLEGRA [Concomitant]

REACTIONS (6)
  - Skin disorder [Unknown]
  - Cough [Unknown]
  - Throat irritation [Unknown]
  - Paraesthesia [Unknown]
  - Dry skin [Unknown]
  - Acne [Unknown]
